FAERS Safety Report 10258182 (Version 1)
Quarter: 2014Q2

REPORT INFORMATION
  Report Type: Spontaneous
  Country: US (occurrence: None)
  Receive Date: 20140623
  Receipt Date: 20140623
  Transmission Date: 20141212
  Serious: Yes (Hospitalization)
  Sender: FDA-Public Use
  Company Number: UNT-2014-002323

PATIENT
  Age: 49 Year
  Sex: Female

DRUGS (3)
  1. REMODULIN [Suspect]
     Indication: COR PULMONALE CHRONIC
     Route: 058
     Dates: start: 20120505
  2. ADCIRCA (TADALAFIL) [Concomitant]
  3. TRACLEER /01587701/ (BOSENTAN) [Concomitant]

REACTIONS (2)
  - Fluid overload [None]
  - Dyspnoea [None]
